FAERS Safety Report 4726955-3 (Version None)
Quarter: 2005Q3

REPORT INFORMATION
  Report Type: 
  Country: None (occurrence: None)
  Receive Date: 20050725
  Receipt Date: 20050725
  Transmission Date: 20060218
  Serious: No
  Sender: FDA-Public Use
  Company Number: None

PATIENT
  Sex: Male
  Weight: 96 kg

DRUGS (12)
  1. ZOCOR [Suspect]
     Indication: HYPERLIPIDAEMIA
     Dosage: 40MG   QHS    ORAL
     Route: 048
     Dates: start: 20050601, end: 20050720
  2. PLAVIX [Concomitant]
  3. NITROGLYCERIN [Concomitant]
  4. NTG SL [Concomitant]
  5. QUININE SULFATE [Concomitant]
  6. PRILOSEC [Concomitant]
  7. PLENDIL [Concomitant]
  8. PRIMIDONE [Concomitant]
  9. VICODIN [Concomitant]
  10. HYTRIN [Concomitant]
  11. LOTRIMIN [Concomitant]
  12. NEPHROCAPS [Concomitant]

REACTIONS (2)
  - MUSCULAR WEAKNESS [None]
  - PAIN [None]
